FAERS Safety Report 25742386 (Version 2)
Quarter: 2025Q4

REPORT INFORMATION
  Report Type: Spontaneous
  Country: EU (occurrence: EU)
  Receive Date: 20250829
  Receipt Date: 20251010
  Transmission Date: 20260118
  Serious: Yes (Life-Threatening, Hospitalization, Other)
  Sender: NOVO NORDISK
  Company Number: EU-NOVOPROD-1506338

PATIENT
  Sex: Female
  Weight: 77.5 kg

DRUGS (6)
  1. TRESIBA [Suspect]
     Active Substance: INSULIN DEGLUDEC
     Indication: Type 1 diabetes mellitus
     Dosage: UNK
  2. NOVORAPID [Suspect]
     Active Substance: INSULIN ASPART
     Indication: Type 1 diabetes mellitus
     Dosage: UNK
  3. ATENOLOL [Concomitant]
     Active Substance: ATENOLOL
     Indication: Cardiac fibrillation
     Dosage: UNK, BID
  4. BRINTELLIX [Concomitant]
     Active Substance: VORTIOXETINE HYDROBROMIDE
     Indication: Depression
     Dosage: UNK
  5. ZOLEDRONIC ACID [Concomitant]
     Active Substance: ZOLEDRONIC ACID
     Indication: Product used for unknown indication
     Dosage: UNK (AFTER THE BREAST CANCER)
     Dates: start: 2021, end: 2025
  6. FRAGMIN [Suspect]
     Active Substance: DALTEPARIN SODIUM
     Indication: Anticoagulant therapy
     Dosage: UNK

REACTIONS (19)
  - Breast cancer [Recovered/Resolved]
  - Metastasis [Recovered/Resolved]
  - Lymphoedema [Recovered/Resolved]
  - Sjogren^s syndrome [Not Recovered/Not Resolved]
  - Intestinal haemorrhage [Unknown]
  - Trigger finger [Not Recovered/Not Resolved]
  - Blood glucose increased [Recovered/Resolved]
  - Cataract [Unknown]
  - Retinal injury [Unknown]
  - Pancreatic disorder [Not Recovered/Not Resolved]
  - Osteoarthritis [Not Recovered/Not Resolved]
  - Gastrointestinal disorder [Not Recovered/Not Resolved]
  - Infection [Unknown]
  - Spinal osteoarthritis [Not Recovered/Not Resolved]
  - Feeling abnormal [Unknown]
  - Injection site bruising [Unknown]
  - Blood glucose decreased [Recovered/Resolved]
  - Injection site injury [Unknown]
  - Actinic keratosis [Recovered/Resolved]

NARRATIVE: CASE EVENT DATE: 20000101
